FAERS Safety Report 7262105-X (Version None)
Quarter: 2011Q1

REPORT INFORMATION
  Report Type: 
  Country: None (occurrence: None)
  Receive Date: 20110130
  Receipt Date: 20101202
  Transmission Date: 20110831
  Serious: No
  Sender: FDA-Public Use
  Company Number: US-ABBOTT-10P-163-0689071-00

PATIENT
  Age: 19 Year
  Sex: Female

DRUGS (3)
  1. ASACOL [Concomitant]
     Indication: CROHN'S DISEASE
  2. IMURAN [Concomitant]
     Indication: CROHN'S DISEASE
     Dosage: 50MG- 4 IN THE MORNING
  3. HUMIRA [Suspect]
     Indication: CROHN'S DISEASE
     Dosage: LOADING DOSE
     Dates: start: 20101117

REACTIONS (2)
  - INJECTION SITE ERYTHEMA [None]
  - INJECTION SITE PAIN [None]
